FAERS Safety Report 9894388 (Version 2)
Quarter: 2014Q1

REPORT INFORMATION
  Report Type: Spontaneous
  Country: US (occurrence: US)
  Receive Date: 20140213
  Receipt Date: 20140213
  Transmission Date: 20141002
  Serious: Yes (Other)
  Sender: FDA-Public Use
  Company Number: US-GE HEALTHCARE MEDICAL DIAGNOSTICS-OSCN-PR-0706S-0250

PATIENT
  Age: 29 Year
  Sex: Male

DRUGS (7)
  1. OMNISCAN [Suspect]
     Indication: POST PROCEDURAL URINE LEAK
     Route: 042
     Dates: start: 20060619, end: 20060619
  2. OMNISCAN [Suspect]
     Indication: PRODUCT USED FOR UNKNOWN INDICATION
     Route: 042
     Dates: start: 20060523, end: 20060523
  3. OMNISCAN [Suspect]
     Indication: PRODUCT USED FOR UNKNOWN INDICATION
     Route: 042
     Dates: start: 20060527, end: 20060527
  4. OMNISCAN [Suspect]
     Indication: POST PROCEDURAL URINE LEAK
     Route: 042
     Dates: start: 20060605, end: 20060605
  5. OMNISCAN [Suspect]
     Indication: POST PROCEDURAL URINE LEAK
     Route: 042
     Dates: start: 20060501, end: 20060501
  6. OMNISCAN [Suspect]
     Indication: PRODUCT USED FOR UNKNOWN INDICATION
     Route: 042
     Dates: start: 20060717, end: 20060717
  7. OMNISCAN [Suspect]
     Indication: PRODUCT USED FOR UNKNOWN INDICATION
     Route: 042
     Dates: start: 20060804, end: 20060804

REACTIONS (2)
  - Nephrogenic systemic fibrosis [Not Recovered/Not Resolved]
  - Blood calcium increased [Unknown]
